FAERS Safety Report 20663715 (Version 1)
Quarter: 2022Q2

REPORT INFORMATION
  Report Type: Report from Study
  Country: US (occurrence: US)
  Receive Date: 20220401
  Receipt Date: 20220401
  Transmission Date: 20220720
  Serious: No
  Sender: FDA-Public Use
  Company Number: US-BEH-2022143042

PATIENT
  Age: 36 Year
  Sex: Female
  Weight: 155.9 kg

DRUGS (2)
  1. HIZENTRA [Suspect]
     Active Substance: HUMAN IMMUNOGLOBULIN G
     Indication: Hypogammaglobulinaemia
     Dosage: 22 GRAM, QW
     Route: 065
  2. HIZENTRA [Suspect]
     Active Substance: HUMAN IMMUNOGLOBULIN G
     Indication: Primary immunodeficiency syndrome
     Dosage: 22 GRAM, QW
     Route: 058
     Dates: start: 20220303

REACTIONS (5)
  - Dermatitis contact [Recovering/Resolving]
  - Rash [Recovering/Resolving]
  - Infusion site bruising [Unknown]
  - Infusion site mass [Unknown]
  - Infusion site urticaria [Unknown]

NARRATIVE: CASE EVENT DATE: 20220301
